FAERS Safety Report 10531294 (Version 10)
Quarter: 2023Q1

REPORT INFORMATION
  Report Type: Report from Study
  Country: JP (occurrence: JP)
  Receive Date: 20141021
  Receipt Date: 20230207
  Transmission Date: 20230417
  Serious: Yes (Hospitalization, Other)
  Sender: FDA-Public Use
  Company Number: PHHY2013JP140832

PATIENT
  Age: 12 Year
  Sex: Female
  Weight: 38 kg

DRUGS (14)
  1. ILARIS [Suspect]
     Active Substance: CANAKINUMAB
     Indication: Muckle-Wells syndrome
     Dosage: 150 MG, QD
     Route: 058
     Dates: start: 20120501
  2. ILARIS [Suspect]
     Active Substance: CANAKINUMAB
     Dosage: 150 MG, QD
     Route: 058
     Dates: start: 20120628
  3. ILARIS [Suspect]
     Active Substance: CANAKINUMAB
     Dosage: 150 MG, QD
     Route: 058
     Dates: start: 20120820
  4. ILARIS [Suspect]
     Active Substance: CANAKINUMAB
     Dosage: 150 MG, QD
     Route: 058
     Dates: start: 20121015
  5. ILARIS [Suspect]
     Active Substance: CANAKINUMAB
     Dosage: 150 MG, QD
     Route: 058
     Dates: start: 20121210
  6. ILARIS [Suspect]
     Active Substance: CANAKINUMAB
     Dosage: 150 MG, QD
     Route: 058
     Dates: start: 20130204
  7. ILARIS [Suspect]
     Active Substance: CANAKINUMAB
     Dosage: 150 MG, QD
     Route: 058
     Dates: start: 20130401
  8. ILARIS [Suspect]
     Active Substance: CANAKINUMAB
     Dosage: 150 MG, QD
     Route: 058
     Dates: start: 20130527
  9. ILARIS [Suspect]
     Active Substance: CANAKINUMAB
     Dosage: 150 MG, QD
     Route: 058
     Dates: start: 20130722
  10. ILARIS [Suspect]
     Active Substance: CANAKINUMAB
     Dosage: 150 MG, QD
     Route: 058
     Dates: start: 20130917
  11. ILARIS [Suspect]
     Active Substance: CANAKINUMAB
     Dosage: 150 MG, QD
     Route: 058
     Dates: start: 20131114
  12. ILARIS [Suspect]
     Active Substance: CANAKINUMAB
     Dosage: 150 MG, QD
     Route: 058
     Dates: start: 20140109
  13. ILARIS [Suspect]
     Active Substance: CANAKINUMAB
     Dosage: 150 MG, QD
     Route: 058
     Dates: start: 20140306
  14. ILARIS [Suspect]
     Active Substance: CANAKINUMAB
     Dosage: 6 MG/KG, UNK
     Route: 058
     Dates: start: 201509

REACTIONS (11)
  - Rhabdomyolysis [Unknown]
  - Blood creatine phosphokinase increased [Recovered/Resolved]
  - Infection [Unknown]
  - Gastrointestinal haemorrhage [Recovered/Resolved]
  - Occult blood positive [Recovered/Resolved]
  - Deafness transitory [Recovering/Resolving]
  - Osteochondrosis [Unknown]
  - Eosinophil count increased [Unknown]
  - Hypoacusis [Not Recovered/Not Resolved]
  - Haemoglobin increased [Unknown]
  - Anaemia [Not Recovered/Not Resolved]

NARRATIVE: CASE EVENT DATE: 20121225
